FAERS Safety Report 9232945 (Version 3)
Quarter: 2013Q3

REPORT INFORMATION
  Report Type: Spontaneous
  Country: JP (occurrence: JP)
  Receive Date: 20130416
  Receipt Date: 20130712
  Transmission Date: 20140515
  Serious: Yes (Hospitalization)
  Sender: FDA-Public Use
  Company Number: JP-JNJFOC-20130405721

PATIENT
  Age: 81 Year
  Sex: Female
  Weight: 39 kg

DRUGS (25)
  1. REMICADE [Suspect]
     Indication: RHEUMATOID ARTHRITIS
     Dosage: 2ND INFUSION
     Route: 042
     Dates: start: 20090526
  2. REMICADE [Suspect]
     Indication: RHEUMATOID ARTHRITIS
     Dosage: 1ST INFUSION
     Route: 042
     Dates: start: 20090512
  3. REMICADE [Suspect]
     Indication: RHEUMATOID ARTHRITIS
     Dosage: 25TH INFUSION
     Route: 042
     Dates: start: 20130122
  4. METOLATE [Suspect]
     Indication: RHEUMATOID ARTHRITIS
     Route: 048
     Dates: start: 20070806
  5. METOLATE [Suspect]
     Indication: RHEUMATOID ARTHRITIS
     Route: 048
     Dates: start: 20130329
  6. METOLATE [Suspect]
     Indication: RHEUMATOID ARTHRITIS
     Route: 048
     Dates: start: 20090512
  7. MEDROL [Suspect]
     Indication: RHEUMATOID ARTHRITIS
     Dosage: ADMINISTERED BEFORE 06-JAN-2006
     Route: 048
     Dates: start: 200601
  8. MEDROL [Suspect]
     Indication: RHEUMATOID ARTHRITIS
     Route: 048
     Dates: start: 20130212
  9. MEDROL [Suspect]
     Indication: RHEUMATOID ARTHRITIS
     Route: 048
     Dates: start: 20130208, end: 20130211
  10. FOLIAMIN [Concomitant]
     Indication: PROPHYLAXIS
     Route: 048
     Dates: start: 20070313
  11. TAKEPRON [Concomitant]
     Indication: PROPHYLAXIS
     Route: 048
     Dates: start: 20080501
  12. ACTONEL [Concomitant]
     Indication: OSTEOPOROSIS
     Route: 048
     Dates: start: 20080626
  13. PREDONINE [Concomitant]
     Indication: PROPHYLAXIS
     Route: 042
     Dates: start: 20090512
  14. XYZAL [Concomitant]
     Indication: PROPHYLAXIS
     Route: 048
     Dates: start: 20110124
  15. GASLON N [Concomitant]
     Indication: PROPHYLAXIS
     Dosage: DOSE FOR 1 TREATEMENT: 2 MG
     Route: 048
     Dates: start: 200601
  16. AZULFIDINE EN [Concomitant]
     Indication: RHEUMATOID ARTHRITIS
     Dosage: DOSE FOR 1 TREATEMENT: 500 MG
     Route: 048
     Dates: start: 200601
  17. MOBIC [Concomitant]
     Indication: RHEUMATOID ARTHRITIS
     Route: 048
     Dates: start: 200601
  18. DAI-KENCHU-TO [Concomitant]
     Dosage: DOSE FOR 1 TREATEMENT: 5 G
     Route: 048
  19. DEPAS [Concomitant]
     Route: 048
  20. ALOSENN [Concomitant]
     Dosage: DOSE: 0.5 DF
     Route: 048
  21. JUZEN-TAIHO-TO [Concomitant]
     Dosage: DOSE: 7.5DF
     Route: 048
  22. ALEGYSAL [Concomitant]
     Dosage: DOSE: 10 DF; DOSE FOR 1 TREATEMENT: 5 DF
     Route: 048
  23. VACCINES [Concomitant]
     Dosage: ROUTE OF ADMINISTRATION: 051
     Route: 065
  24. KLARICID [Concomitant]
     Dosage: DOSE: 400 DF; DOSE FOR 1 TREATEMENT: 200 DF
     Route: 048
  25. FLAVONATE [Concomitant]
     Dosage: DOSE: 1 TAB IN THE EVENING
     Route: 048

REACTIONS (2)
  - Pulmonary mycosis [Recovering/Resolving]
  - Anxiety [Unknown]
